FAERS Safety Report 7372285-3 (Version None)
Quarter: 2011Q1

REPORT INFORMATION
  Report Type: 
  Country: None (occurrence: None)
  Receive Date: 20110324
  Receipt Date: 20110316
  Transmission Date: 20110831
  Serious: Yes (Hospitalization, Congenital Anomaly)
  Sender: FDA-Public Use
  Company Number: A0919491A

PATIENT
  Sex: Female
  Weight: 2.7 kg

DRUGS (1)
  1. PAXIL [Suspect]
     Route: 064

REACTIONS (9)
  - DRUG EXPOSURE DURING PREGNANCY [None]
  - CONGENITAL HYDRONEPHROSIS [None]
  - VENTRICULAR SEPTAL DEFECT [None]
  - FALLOT'S TETRALOGY [None]
  - CONGENITAL CARDIOVASCULAR ANOMALY [None]
  - RENAL DYSPLASIA [None]
  - ATRIAL SEPTAL DEFECT [None]
  - CONVULSION [None]
  - PATENT DUCTUS ARTERIOSUS [None]
